FAERS Safety Report 5319295-5 (Version None)
Quarter: 2007Q2

REPORT INFORMATION
  Report Type: 
  Country: None (occurrence: None)
  Receive Date: 20070508
  Receipt Date: 20070426
  Transmission Date: 20071010
  Serious: Yes (Hospitalization)
  Sender: FDA-Public Use
  Company Number: US-AMGEN-US221883

PATIENT
  Sex: Male

DRUGS (2)
  1. ENBREL [Suspect]
     Indication: RHEUMATOID ARTHRITIS
     Route: 058
     Dates: start: 20061029
  2. ARAVA [Concomitant]
     Route: 048
     Dates: start: 20070201

REACTIONS (2)
  - BACK INJURY [None]
  - DRUG INEFFECTIVE [None]
